FAERS Safety Report 8527072 (Version 2)
Quarter: 2012Q4

REPORT INFORMATION
  Report Type: 
  Country: US (occurrence: US)
  Receive Date: 20120424
  Receipt Date: 20121221
  Transmission Date: 20130627
  Serious: No
  Sender: FDA-Public Use
  Company Number: US-PFIZER INC-2012097509

PATIENT
  Sex: Female

DRUGS (4)
  1. NORVASC [Suspect]
     Dosage: UNK
  2. PROTONIX [Suspect]
     Dosage: UNK
  3. GLUCOTROL XL [Suspect]
     Dosage: UNK
  4. LIPITOR [Suspect]
     Dosage: UNK

REACTIONS (4)
  - Headache [Unknown]
  - Vertigo [Unknown]
  - Cough [Unknown]
  - Nasopharyngitis [Unknown]
